FAERS Safety Report 8144872-6 (Version None)
Quarter: 2012Q1

REPORT INFORMATION
  Report Type: 
  Country: None (occurrence: None)
  Receive Date: 20120217
  Receipt Date: 20120212
  Transmission Date: 20120608
  Serious: Yes (Hospitalization, Other)
  Sender: FDA-Public Use
  Company Number: ZA-GLAXOSMITHKLINE-B0713913A

PATIENT
  Sex: Male
  Weight: 100 kg

DRUGS (1)
  1. ATOVAQUONE [Suspect]
     Indication: MALARIA PROPHYLAXIS
     Route: 065
     Dates: start: 20110301, end: 20110311

REACTIONS (3)
  - ARTHROPOD BITE [None]
  - LOCAL SWELLING [None]
  - ANGIOEDEMA [None]
